FAERS Safety Report 21275175 (Version 1)
Quarter: 2022Q3

REPORT INFORMATION
  Report Type: Spontaneous
  Country: ES (occurrence: ES)
  Receive Date: 20220831
  Receipt Date: 20220831
  Transmission Date: 20221027
  Serious: Yes (Death)
  Sender: FDA-Public Use
  Company Number: ES-PFIZER INC-PV202200048294

PATIENT
  Age: 70 Year
  Sex: Male

DRUGS (1)
  1. METHYLPREDNISOLONE SODIUM SUCCINATE [Suspect]
     Active Substance: METHYLPREDNISOLONE SODIUM SUCCINATE
     Indication: Exophthalmos
     Dosage: 500 MG, WEEKLY (INTRAVENOUS PULSES)
     Route: 042

REACTIONS (4)
  - Drug intolerance [Fatal]
  - Drug ineffective for unapproved indication [Fatal]
  - Erdheim-Chester disease [Fatal]
  - Off label use [Fatal]
